FAERS Safety Report 22651386 (Version 4)
Quarter: 2023Q4

REPORT INFORMATION
  Report Type: Spontaneous
  Country: US (occurrence: US)
  Receive Date: 20230628
  Receipt Date: 20231130
  Transmission Date: 20240109
  Serious: No
  Sender: FDA-Public Use
  Company Number: US-BRISTOL-MYERS SQUIBB COMPANY-2023-090807

PATIENT
  Age: 82 Year
  Sex: Male
  Weight: 84.82 kg

DRUGS (3)
  1. REVLIMID [Suspect]
     Active Substance: LENALIDOMIDE
     Indication: Plasma cell myeloma
     Dosage: 3WKSON,1WKOFF
     Route: 048
  2. REVLIMID [Suspect]
     Active Substance: LENALIDOMIDE
     Route: 048
  3. REVLIMID [Suspect]
     Active Substance: LENALIDOMIDE
     Route: 048

REACTIONS (7)
  - Tooth infection [Unknown]
  - Fatigue [Unknown]
  - Constipation [Unknown]
  - Gastrointestinal disorder [Unknown]
  - Pruritus [Unknown]
  - Dyspnoea [Unknown]
  - Nasal congestion [Unknown]
